FAERS Safety Report 10494393 (Version 2)
Quarter: 2014Q4

REPORT INFORMATION
  Report Type: Report from Study
  Country: CA (occurrence: CA)
  Receive Date: 20141003
  Receipt Date: 20141014
  Transmission Date: 20150528
  Serious: Yes (Other)
  Sender: FDA-Public Use
  Company Number: CA-JNJFOC-20140922146

PATIENT
  Age: 59 Year
  Sex: Female
  Weight: 60 kg

DRUGS (26)
  1. NEXIUM [Concomitant]
     Active Substance: ESOMEPRAZOLE MAGNESIUM
     Indication: OESOPHAGITIS
     Route: 065
     Dates: start: 1978
  2. GAVISCON P [Concomitant]
     Indication: ULCER
     Dosage: UPTO DAILY MAX
     Route: 065
     Dates: start: 1978
  3. GAVISCON P [Concomitant]
     Indication: OESOPHAGITIS
     Dosage: UPTO DAILY MAX
     Route: 065
     Dates: start: 1978
  4. BEANO [Concomitant]
     Active Substance: ASPERGILLUS NIGER .ALPHA.-GALACTOSIDASE
     Indication: DYSPEPSIA
     Route: 065
     Dates: start: 2010
  5. FOSAMAX [Concomitant]
     Active Substance: ALENDRONATE SODIUM
     Indication: BONE DENSITY ABNORMAL
     Route: 065
     Dates: start: 2004, end: 2008
  6. VITAMIN D [Concomitant]
     Active Substance: CHOLECALCIFEROL
     Indication: OSTEOPOROSIS PROPHYLAXIS
     Route: 065
     Dates: start: 2002
  7. FLUCONAZOLE. [Concomitant]
     Active Substance: FLUCONAZOLE
     Indication: FUNGAL INFECTION
     Route: 065
     Dates: start: 1990
  8. OMNARIS [Concomitant]
     Active Substance: CICLESONIDE
     Route: 065
     Dates: start: 2010
  9. SOLU-CORTEF [Concomitant]
     Active Substance: HYDROCORTISONE SODIUM SUCCINATE
     Indication: RHEUMATOID ARTHRITIS
     Route: 065
     Dates: start: 2008
  10. IMURAN [Concomitant]
     Active Substance: AZATHIOPRINE
     Indication: RHEUMATOID ARTHRITIS
     Route: 065
     Dates: start: 1983, end: 1987
  11. TUMS [Concomitant]
     Active Substance: CALCIUM CARBONATE
     Indication: ULCER
     Route: 065
  12. FOLIC ACID. [Concomitant]
     Active Substance: FOLIC ACID
     Indication: ANAEMIA
     Route: 065
     Dates: start: 2002
  13. SLOW FE FOLIC [Concomitant]
     Indication: ANAEMIA
     Route: 065
     Dates: start: 1984, end: 2002
  14. OMNARIS [Concomitant]
     Active Substance: CICLESONIDE
     Route: 065
     Dates: start: 1981
  15. PREMARIN [Concomitant]
     Active Substance: ESTROGENS, CONJUGATED
     Dosage: ON MON, WED, SAT AND SUN 3 WEEKS ON AND 1 WEEK OFF
     Route: 065
     Dates: start: 2002
  16. REMICADE [Suspect]
     Active Substance: INFLIXIMAB
     Indication: RHEUMATOID ARTHRITIS
     Route: 042
     Dates: start: 200211
  17. MILK OF MAGNESIA [Concomitant]
     Active Substance: MAGNESIUM HYDROXIDE
     Indication: CONSTIPATION
     Route: 065
     Dates: start: 1970
  18. ETODOLAC. [Concomitant]
     Active Substance: ETODOLAC
     Indication: RHEUMATOID ARTHRITIS
     Route: 065
     Dates: start: 1975
  19. TUMS [Concomitant]
     Active Substance: CALCIUM CARBONATE
     Indication: GASTROOESOPHAGEAL REFLUX DISEASE
     Route: 065
  20. CENTRUM NOS [Concomitant]
     Indication: VITAMIN SUPPLEMENTATION
     Route: 065
     Dates: start: 2005
  21. IMURAN [Concomitant]
     Active Substance: AZATHIOPRINE
     Indication: RHEUMATOID ARTHRITIS
     Dosage: TWO AND A HALF TABLET PER DAY
     Route: 065
     Dates: start: 1993
  22. ETODOLAC. [Concomitant]
     Active Substance: ETODOLAC
     Indication: RHEUMATOID ARTHRITIS
     Route: 065
     Dates: start: 2005
  23. NEXIUM [Concomitant]
     Active Substance: ESOMEPRAZOLE MAGNESIUM
     Indication: OESOPHAGITIS
     Route: 065
     Dates: start: 2003
  24. GAVISCON P [Concomitant]
     Indication: GASTROOESOPHAGEAL REFLUX DISEASE
     Dosage: UPTO DAILY MAX
     Route: 065
     Dates: start: 1978
  25. TUMS [Concomitant]
     Active Substance: CALCIUM CARBONATE
     Indication: OESOPHAGITIS
     Route: 065
  26. ACTONEL [Concomitant]
     Active Substance: RISEDRONATE SODIUM
     Indication: BONE DENSITY ABNORMAL
     Route: 065
     Dates: start: 2010

REACTIONS (14)
  - Sciatica [Not Recovered/Not Resolved]
  - Torsade de pointes [Unknown]
  - Fungal infection [Unknown]
  - Coeliac disease [Unknown]
  - Sjogren^s syndrome [Not Recovered/Not Resolved]
  - Bone density abnormal [Unknown]
  - Oral herpes [Unknown]
  - Pain [Not Recovered/Not Resolved]
  - Hypercholesterolaemia [Unknown]
  - Cutaneous tuberculosis [Unknown]
  - Lactose intolerance [Unknown]
  - H1N1 influenza [Unknown]
  - Paraesthesia [Not Recovered/Not Resolved]
  - Herpes zoster [Unknown]

NARRATIVE: CASE EVENT DATE: 2002
